FAERS Safety Report 9236520 (Version 1)
Quarter: 2013Q2

REPORT INFORMATION
  Report Type: Spontaneous
  Country: US (occurrence: US)
  Receive Date: 20130417
  Receipt Date: 20130417
  Transmission Date: 20140414
  Serious: Yes (Other)
  Sender: FDA-Public Use
  Company Number: US-PFIZER INC-2013117583

PATIENT
  Age: 41 Year
  Sex: Female

DRUGS (4)
  1. PHENYTOIN [Suspect]
     Indication: CONVULSION
     Dosage: UNK
  2. TOPIRAMATE [Suspect]
     Indication: CONVULSION
     Dosage: UNK
  3. CARBAMAZEPINE [Suspect]
     Indication: CONVULSION
     Dosage: UNK
  4. FLUOXETINE [Concomitant]
     Indication: CONVULSION
     Dosage: 10 MG/DAY

REACTIONS (3)
  - Drug ineffective [Unknown]
  - Hallucination, auditory [Unknown]
  - Hallucination, visual [Unknown]
